FAERS Safety Report 9312998 (Version 1)
Quarter: 2013Q2

REPORT INFORMATION
  Report Type: Spontaneous
  Country: US (occurrence: US)
  Receive Date: 20130528
  Receipt Date: 20130528
  Transmission Date: 20140414
  Serious: No
  Sender: FDA-Public Use
  Company Number: US-ABBOTT-13P-163-1062989-00

PATIENT
  Age: 82 Year
  Sex: Male
  Weight: 84.44 kg

DRUGS (13)
  1. ANDROGEL [Suspect]
     Indication: BLOOD TESTOSTERONE DECREASED
     Dosage: 2 PUMP ACTUATIONS PER DAY
     Dates: start: 2012
  2. ANDROGEL [Suspect]
     Dosage: ONE PUMP ACTUATION PER DAY
     Dates: start: 2012, end: 2012
  3. ANDROGEL [Suspect]
     Dosage: 3 PUMP ACTUATIONS PER DAY
     Dates: start: 2013
  4. PACERONE [Concomitant]
     Indication: CARDIAC DISORDER
  5. PRILOSEC [Concomitant]
     Indication: GASTRIC DISORDER
  6. BABY ASPIRIN [Concomitant]
     Indication: PRODUCT USED FOR UNKNOWN INDICATION
  7. VITAMIN E [Concomitant]
     Indication: PRODUCT USED FOR UNKNOWN INDICATION
  8. AMBIEN [Concomitant]
     Indication: INSOMNIA
  9. MULTIVITAMIN [Concomitant]
     Indication: PRODUCT USED FOR UNKNOWN INDICATION
  10. NITROGLYCERINE [Concomitant]
     Indication: CHEST PAIN
  11. RENEXA [Concomitant]
     Indication: ANGINA PECTORIS
  12. FUROSEMIDE [Concomitant]
     Indication: PRODUCT USED FOR UNKNOWN INDICATION
  13. PLAVIX [Concomitant]
     Indication: PRODUCT USED FOR UNKNOWN INDICATION

REACTIONS (3)
  - Chest pain [Recovered/Resolved]
  - Asthenia [Not Recovered/Not Resolved]
  - Back pain [Not Recovered/Not Resolved]
